FAERS Safety Report 13587428 (Version 1)
Quarter: 2017Q2

REPORT INFORMATION
  Report Type: Report from Study
  Country: US (occurrence: US)
  Receive Date: 20170526
  Receipt Date: 20170526
  Transmission Date: 20170830
  Serious: Yes (Hospitalization)
  Sender: FDA-Public Use
  Company Number: US-ACTELION-A-NJ2017-154413

PATIENT
  Age: 64 Year
  Sex: Male

DRUGS (14)
  1. ENALAPRIL [Concomitant]
     Active Substance: ENALAPRIL
  2. TYVASO [Concomitant]
     Active Substance: TREPROSTINIL
  3. OSELTAMIVIR [Concomitant]
     Active Substance: OSELTAMIVIR
  4. SIMVASTATIN. [Concomitant]
     Active Substance: SIMVASTATIN
  5. LEVOFLOXACIN. [Concomitant]
     Active Substance: LEVOFLOXACIN
  6. ADCIRCA [Concomitant]
     Active Substance: TADALAFIL
  7. ALBUTEROL. [Concomitant]
     Active Substance: ALBUTEROL
  8. NORCO [Concomitant]
     Active Substance: ACETAMINOPHEN\HYDROCODONE BITARTRATE
  9. FENTANYL. [Concomitant]
     Active Substance: FENTANYL
  10. PREDNISONE. [Concomitant]
     Active Substance: PREDNISONE
  11. TRACLEER [Suspect]
     Active Substance: BOSENTAN
     Indication: PULMONARY ARTERIAL HYPERTENSION
     Dosage: 62.5 MG, BID
     Route: 048
     Dates: start: 20130613
  12. TRICOR [Concomitant]
     Active Substance: FENOFIBRATE
  13. TORSEMIDE. [Concomitant]
     Active Substance: TORSEMIDE
  14. ZOLPIDEM [Concomitant]
     Active Substance: ZOLPIDEM\ZOLPIDEM TARTRATE

REACTIONS (2)
  - Pyrexia [Recovered/Resolved]
  - Influenza [Recovered/Resolved]
